FAERS Safety Report 4268256-6 (Version None)
Quarter: 2004Q1

REPORT INFORMATION
  Report Type: 
  Country: None (occurrence: None)
  Receive Date: 20040109
  Receipt Date: 20031229
  Transmission Date: 20041129
  Serious: Yes (Other)
  Sender: FDA-Public Use
  Company Number: 2003127188

PATIENT
  Sex: Female

DRUGS (1)
  1. SUDAFED COLD + SINUS (PARACETAMOL, PSEUDOEPHEDRINE) [Suspect]
     Indication: NASOPHARYNGITIS
     Dosage: 2 LIQUIDCAPS TWO TIMES, ORAL
     Route: 048
     Dates: start: 20031228, end: 20031229

REACTIONS (4)
  - DYSPNOEA [None]
  - OEDEMA PERIPHERAL [None]
  - PRURITUS [None]
  - URTICARIA [None]
